FAERS Safety Report 5492960-5 (Version None)
Quarter: 2007Q4

REPORT INFORMATION
  Report Type: 
  Country: None (occurrence: None)
  Receive Date: 20071023
  Receipt Date: 20071012
  Transmission Date: 20080405
  Serious: Yes (Other)
  Sender: FDA-Public Use
  Company Number: US-AMGEN-QUU247692

PATIENT
  Sex: Male

DRUGS (9)
  1. ARANESP [Suspect]
     Indication: RENAL FAILURE CHRONIC
     Dates: start: 20040501
  2. GLYBURIDE [Concomitant]
  3. ACTOS [Concomitant]
  4. LIPITOR [Concomitant]
  5. LABETALOL [Concomitant]
  6. ASPIRIN [Concomitant]
  7. FLOMAX [Concomitant]
  8. LANTUS [Concomitant]
  9. MICARDIS [Concomitant]

REACTIONS (1)
  - LUNG NEOPLASM MALIGNANT [None]
